FAERS Safety Report 4522291-9 (Version None)
Quarter: 2004Q4

REPORT INFORMATION
  Report Type: 
  Country: None (occurrence: None)
  Receive Date: 20041207
  Receipt Date: 20041124
  Transmission Date: 20050328
  Serious: Yes (Hospitalization, Other)
  Sender: FDA-Public Use
  Company Number: 2004098596

PATIENT
  Age: 13 Year
  Sex: Male

DRUGS (3)
  1. VFEND [Suspect]
     Indication: ILL-DEFINED DISORDER
     Dosage: 400 MG (1 IN 1 D), ORAL
     Route: 048
     Dates: start: 20031124
  2. CASPOFUNGIN ACETATE (CASPOFUNGIN ACETATE) [Concomitant]
  3. AMPHOTERICIN B [Concomitant]

REACTIONS (13)
  - ABDOMINAL PAIN [None]
  - BLADDER DILATATION [None]
  - CHOLECYSTITIS [None]
  - CHOLELITHIASIS [None]
  - CHOLESTASIS [None]
  - CONDITION AGGRAVATED [None]
  - CYTOLYTIC HEPATITIS [None]
  - ESCHERICHIA SEPSIS [None]
  - FIBROSIS [None]
  - HEPATIC STEATOSIS [None]
  - PANCREATITIS [None]
  - RENAL FAILURE ACUTE [None]
  - SEPTIC SHOCK [None]
